FAERS Safety Report 6898591-4 (Version None)
Quarter: 2010Q3

REPORT INFORMATION
  Report Type: 
  Country: None (occurrence: None)
  Receive Date: 20100729
  Receipt Date: 20100721
  Transmission Date: 20110219
  Serious: Yes (Hospitalization)
  Sender: FDA-Public Use
  Company Number: TPA2010A04196

PATIENT
  Sex: Female

DRUGS (1)
  1. ACTOS [Suspect]

REACTIONS (1)
  - BLOOD GLUCOSE INCREASED [None]
